FAERS Safety Report 8552338-4 (Version None)
Quarter: 2012Q3

REPORT INFORMATION
  Report Type: 
  Country: None (occurrence: None)
  Receive Date: 20120718
  Receipt Date: 20100427
  Transmission Date: 20120928
  Serious: Yes (Hospitalization)
  Sender: FDA-Public Use
  Company Number: DSA_58482_2012

PATIENT
  Sex: Female

DRUGS (14)
  1. CLOXACILLIN SODIUM [Concomitant]
  2. N'ICE LOZENGES [Concomitant]
  3. PAPAIN [Concomitant]
  4. PARACETAMOL/PHENYLTOLOXAMINE [Concomitant]
  5. FLUOROURACIL [Suspect]
     Indication: BREAST CANCER
     Dosage: 790;780 MG EVERY CYCLE
     Dates: start: 20100222, end: 20100222
  6. CYCLOPHOSPHAMIDE [Suspect]
     Indication: BREAST CANCER
     Dosage: 790 MG EVERY CYCLE
     Dates: start: 20100407, end: 20100407
  7. CYCLOPHOSPHAMIDE [Suspect]
     Indication: BREAST CANCER
     Dosage: 790 MG EVERY CYCLE
     Dates: start: 20100222, end: 20100222
  8. HYPROMELLOSE [Concomitant]
  9. AUGMENTIN '125' [Concomitant]
  10. DOXORUBICIN HCL [Suspect]
     Indication: BREAST CANCER
     Dosage: 80;790  MG EVERY CYCLE
     Dates: start: 20100407, end: 20100407
  11. DOXORUBICIN HCL [Suspect]
     Indication: BREAST CANCER
     Dosage: 80;790  MG EVERY CYCLE
     Dates: start: 20100222, end: 20100222
  12. AMPICILLIN [Concomitant]
  13. ANACIN-3 W/ CODEINE #3 [Concomitant]
  14. EXPERCTORANT SYRUP [Concomitant]

REACTIONS (8)
  - ALOPECIA [None]
  - ANAL ABSCESS [None]
  - DRY EYE [None]
  - HAEMOGLOBIN DECREASED [None]
  - CARBUNCLE [None]
  - COUGH [None]
  - NAUSEA [None]
  - MALAISE [None]
